FAERS Safety Report 14254676 (Version 4)
Quarter: 2018Q4

REPORT INFORMATION
  Report Type: Spontaneous
  Country: FR (occurrence: FR)
  Receive Date: 20171206
  Receipt Date: 20181015
  Transmission Date: 20190204
  Serious: Yes (Hospitalization, Other)
  Sender: FDA-Public Use
  Company Number: FR-ASTELLAS-2017US043879

PATIENT
  Age: 32 Year
  Sex: Female

DRUGS (13)
  1. PROGRAF [Suspect]
     Active Substance: TACROLIMUS\TACROLIMUS ANHYDROUS
     Indication: RENAL TRANSPLANT
     Dosage: UNK UNK, UNKNOWN FREQ.
     Route: 065
  2. IMUREL                             /00001501/ [Concomitant]
     Active Substance: AZATHIOPRINE SODIUM
     Indication: PRODUCT USED FOR UNKNOWN INDICATION
     Route: 065
  3. ARANESP [Concomitant]
     Active Substance: DARBEPOETIN ALFA
     Indication: PRODUCT USED FOR UNKNOWN INDICATION
     Route: 065
  4. ADVAGRAF [Suspect]
     Active Substance: TACROLIMUS
     Route: 065
     Dates: start: 201211
  5. CORTANCYL [Concomitant]
     Active Substance: PREDNISONE
     Indication: PRODUCT USED FOR UNKNOWN INDICATION
     Route: 065
  6. ECONAZOLE. [Concomitant]
     Active Substance: ECONAZOLE NITRATE
     Indication: PRODUCT USED FOR UNKNOWN INDICATION
     Dosage: UNK UNK, UNKNOWN FREQ.
     Route: 065
  7. TRIFLUCAN [Concomitant]
     Active Substance: FLUCONAZOLE
     Indication: PRODUCT USED FOR UNKNOWN INDICATION
     Route: 065
     Dates: start: 20170918, end: 20170918
  8. ADVAGRAF [Suspect]
     Active Substance: TACROLIMUS
     Route: 065
  9. FOLIC ACID. [Concomitant]
     Active Substance: FOLIC ACID
     Indication: PRODUCT USED FOR UNKNOWN INDICATION
     Dosage: UNK UNK, UNKNOWN FREQ.
     Route: 065
  10. ADVAGRAF [Suspect]
     Active Substance: TACROLIMUS
     Indication: RENAL TRANSPLANT
     Dosage: UNK UNK, UNKNOWN FREQ.
     Route: 048
  11. ADVAGRAF [Suspect]
     Active Substance: TACROLIMUS
     Route: 065
  12. IRON [Concomitant]
     Active Substance: IRON
     Indication: PRODUCT USED FOR UNKNOWN INDICATION
     Dosage: UNK UNK, UNKNOWN FREQ.
     Route: 065
  13. ASPEGIC                            /00002703/ [Concomitant]
     Active Substance: ASPIRIN DL-LYSINE
     Indication: PRODUCT USED FOR UNKNOWN INDICATION
     Route: 065

REACTIONS (9)
  - Postpartum haemorrhage [Unknown]
  - Exposure during pregnancy [Unknown]
  - Product dispensing error [Unknown]
  - Premature delivery [Unknown]
  - Hypertension [Unknown]
  - Candida infection [Unknown]
  - Abortion threatened [Unknown]
  - Beta haemolytic streptococcal infection [Unknown]
  - Renal failure [Unknown]

NARRATIVE: CASE EVENT DATE: 201710
